FAERS Safety Report 18293018 (Version 2)
Quarter: 2022Q1

REPORT INFORMATION
  Report Type: Spontaneous
  Country: US (occurrence: US)
  Receive Date: 20200922
  Receipt Date: 20220302
  Transmission Date: 20220423
  Serious: Yes (Hospitalization, Other)
  Sender: FDA-Public Use
  Company Number: US-GLAXOSMITHKLINE-US2020GSK188505

PATIENT
  Sex: Male

DRUGS (3)
  1. ZANTAC [Suspect]
     Active Substance: RANITIDINE HYDROCHLORIDE
     Indication: Product used for unknown indication
     Dosage: UNK
     Route: 048
  2. ZANTAC [Suspect]
     Active Substance: RANITIDINE HYDROCHLORIDE
     Indication: Dyspepsia
     Dosage: UNK, QD
     Route: 065
  3. ZANTAC [Suspect]
     Active Substance: RANITIDINE HYDROCHLORIDE
     Indication: Product used for unknown indication
     Dosage: UNK
     Route: 065

REACTIONS (10)
  - Bladder cancer [Unknown]
  - Transitional cell carcinoma [Unknown]
  - Bladder cancer stage 0, with cancer in situ [Unknown]
  - Urethral obstruction [Unknown]
  - Bladder neoplasm [Unknown]
  - Bladder mass [Unknown]
  - Bladder spasm [Unknown]
  - Bladder papilloma [Unknown]
  - Urethral dilatation [Unknown]
  - Unevaluable event [Unknown]
